FAERS Safety Report 5247154-5 (Version None)
Quarter: 2007Q1

REPORT INFORMATION
  Report Type: 
  Country: None (occurrence: None)
  Receive Date: 20070221
  Receipt Date: 20070212
  Transmission Date: 20070707
  Serious: Yes (Hospitalization)
  Sender: FDA-Public Use
  Company Number: 163-21880-07010240

PATIENT
  Age: 78 Year
  Sex: Female

DRUGS (10)
  1. REVLIMID [Suspect]
     Indication: MYELODYSPLASTIC SYNDROME
     Dosage: SEE IMAGE
     Route: 048
     Dates: start: 20060411, end: 20061126
  2. FOSAMAX [Concomitant]
  3. OXYCODONE HCL [Concomitant]
  4. LIDODERM (LIDOCAINE) (POULTICE OR PATCH) [Concomitant]
  5. LEVOXYL [Concomitant]
  6. FAMOTIDINE [Concomitant]
  7. LASIX [Concomitant]
  8. FOLATE (FOLIC ACID) [Concomitant]
  9. FE SULFATE (FERROUS SULFATE) [Concomitant]
  10. CALCIUM (CALCIUM) [Concomitant]

REACTIONS (6)
  - CONTUSION [None]
  - DUODENAL ULCER [None]
  - HAEMATEMESIS [None]
  - PLATELET COUNT DECREASED [None]
  - RETROPHARYNGEAL ABSCESS [None]
  - WHITE BLOOD CELL COUNT DECREASED [None]
